FAERS Safety Report 5842651-3 (Version None)
Quarter: 2008Q3

REPORT INFORMATION
  Report Type: 
  Country: None (occurrence: None)
  Receive Date: 20080808
  Receipt Date: 20080730
  Transmission Date: 20090109
  Serious: Yes (Hospitalization)
  Sender: FDA-Public Use
  Company Number: CERZ-1000323

PATIENT
  Age: 70 Year
  Sex: Female
  Weight: 88 kg

DRUGS (2)
  1. CEREZYME [Suspect]
     Indication: GAUCHER'S DISEASE
     Dosage: 5867 U, Q4W, INTRAVENOUS, 4400 U, Q3W, INTRAVENOUS
     Route: 042
     Dates: start: 19970418, end: 19990731
  2. CEREZYME [Suspect]
     Indication: GAUCHER'S DISEASE
     Dosage: 5867 U, Q4W, INTRAVENOUS, 4400 U, Q3W, INTRAVENOUS
     Route: 042
     Dates: start: 19990731

REACTIONS (4)
  - CAROTID ARTERY OCCLUSION [None]
  - GOUT [None]
  - MYOCARDIAL INFARCTION [None]
  - STEVENS-JOHNSON SYNDROME [None]
